FAERS Safety Report 14299049 (Version 1)
Quarter: 2017Q4

REPORT INFORMATION
  Report Type: Report from Study
  Country: GB (occurrence: GB)
  Receive Date: 20171218
  Receipt Date: 20171218
  Transmission Date: 20180321
  Serious: Yes (Death, Other)
  Sender: FDA-Public Use
  Company Number: GB-AMGEN-US182469

PATIENT
  Age: 55 Year
  Sex: Female
  Weight: 111 kg

DRUGS (4)
  1. ETODOLAC. [Concomitant]
     Active Substance: ETODOLAC
     Dosage: UNK UNK, UNK
  2. PREDNISOLONE. [Concomitant]
     Active Substance: PREDNISOLONE
     Dosage: UNK UNK, UNK
  3. ETANERCEPT [Suspect]
     Active Substance: ETANERCEPT
     Indication: RHEUMATOID ARTHRITIS
     Dosage: 25 MG, 2 TIMES/WK
     Route: 058
     Dates: start: 20031028, end: 20060322
  4. MEPTID [Concomitant]
     Active Substance: MEPTAZINOL HYDROCHLORIDE
     Dosage: UNK UNK, UNK

REACTIONS (1)
  - Breast cancer metastatic [Fatal]

NARRATIVE: CASE EVENT DATE: 20060215
